FAERS Safety Report 12666678 (Version 4)
Quarter: 2016Q4

REPORT INFORMATION
  Report Type: Spontaneous
  Country: US (occurrence: US)
  Receive Date: 20160819
  Receipt Date: 20161013
  Transmission Date: 20170207
  Serious: Yes (Other)
  Sender: FDA-Public Use
  Company Number: US-009507513-1608USA006452

PATIENT
  Age: 15 Year
  Sex: Female
  Weight: 71.2 kg

DRUGS (4)
  1. GABAPENTIN. [Concomitant]
     Active Substance: GABAPENTIN
     Dosage: 100 MG, 6 X DAILY
  2. VIMPAT [Concomitant]
     Active Substance: LACOSAMIDE
     Dosage: 150 MG, QD
  3. NEXPLANON [Suspect]
     Active Substance: ETONOGESTREL
     Indication: MENORRHAGIA
     Dosage: 1 ROD/EVERY 3 YEARS
     Route: 059
     Dates: start: 20160215
  4. LAMICTAL [Concomitant]
     Active Substance: LAMOTRIGINE
     Dosage: UNK

REACTIONS (4)
  - Intentional medical device removal by patient [Unknown]
  - Drug dose omission [Unknown]
  - Device dislocation [Unknown]
  - Complication associated with device [Unknown]

NARRATIVE: CASE EVENT DATE: 2016
